FAERS Safety Report 17737162 (Version 1)
Quarter: 2020Q2

REPORT INFORMATION
  Report Type: Spontaneous
  Country: GB (occurrence: GB)
  Receive Date: 20200502
  Receipt Date: 20200502
  Transmission Date: 20200714
  Serious: Yes (Hospitalization)
  Sender: FDA-Public Use
  Company Number: GB-TEVA-2020-GB-1228901

PATIENT
  Age: 13 Year
  Sex: Male
  Weight: 46 kg

DRUGS (5)
  1. PEGASPARGASE [Concomitant]
     Active Substance: PEGASPARGASE
  2. MERCAPTOPURINE. [Concomitant]
     Active Substance: MERCAPTOPURINE
  3. VINCRISTINE [Concomitant]
     Active Substance: VINCRISTINE
  4. METHOTREXATE. [Suspect]
     Active Substance: METHOTREXATE
     Indication: ACUTE LYMPHOCYTIC LEUKAEMIA
     Dosage: 12 MG
     Route: 037
     Dates: start: 20200408
  5. DAUNORUBICIN [Concomitant]
     Active Substance: DAUNORUBICIN

REACTIONS (6)
  - Aphasia [Recovering/Resolving]
  - Neurotoxicity [Recovering/Resolving]
  - Confusional state [Recovering/Resolving]
  - Somnolence [Recovering/Resolving]
  - Abnormal behaviour [Recovering/Resolving]
  - Headache [Recovering/Resolving]

NARRATIVE: CASE EVENT DATE: 20200412
